FAERS Safety Report 14371559 (Version 1)
Quarter: 2018Q1

REPORT INFORMATION
  Report Type: Spontaneous
  Country: US (occurrence: US)
  Receive Date: 20180109
  Receipt Date: 20180109
  Transmission Date: 20180509
  Serious: Yes (Other)
  Sender: FDA-Public Use
  Company Number: None

PATIENT
  Sex: Female
  Weight: 57.15 kg

DRUGS (6)
  1. PARAGARD T 380A [Suspect]
     Active Substance: COPPER
     Indication: CONTRACEPTION
     Dosage: QUANTITY:1 INTRAUTERINE DEVIC;OTHER FREQUENCY:IMPLANTED FOR 10 Y;OTHER ROUTE:INTRAUTERINE?
     Route: 015
     Dates: start: 20150622, end: 20180109
  2. MAGNESIUM [Concomitant]
     Active Substance: MAGNESIUM
  3. MULTIVITAMIN [Concomitant]
     Active Substance: VITAMINS
  4. PARAGARD T 380A [Concomitant]
     Active Substance: COPPER
  5. VIMPAT [Concomitant]
     Active Substance: LACOSAMIDE
  6. KEPPRA [Concomitant]
     Active Substance: LEVETIRACETAM

REACTIONS (4)
  - Complication associated with device [None]
  - Menorrhagia [None]
  - Device dislocation [None]
  - Uterine spasm [None]

NARRATIVE: CASE EVENT DATE: 20180109
